FAERS Safety Report 10239713 (Version 2)
Quarter: 2014Q2

REPORT INFORMATION
  Report Type: Spontaneous
  Country: US (occurrence: US)
  Receive Date: 20140616
  Receipt Date: 20140617
  Transmission Date: 20141212
  Serious: No
  Sender: FDA-Public Use
  Company Number: US-GILEAD-2014-0105253

PATIENT
  Sex: Male

DRUGS (4)
  1. LETAIRIS [Suspect]
     Indication: PRODUCT USED FOR UNKNOWN INDICATION
     Dosage: 10 MG, QD
     Route: 065
     Dates: start: 20140214
  2. REMODULIN [Suspect]
     Indication: PRODUCT USED FOR UNKNOWN INDICATION
     Route: 065
  3. COUMADIN                           /00014802/ [Concomitant]
  4. REVATIO [Concomitant]

REACTIONS (5)
  - Syncope [Unknown]
  - Catheter management [Unknown]
  - Flushing [Unknown]
  - Nausea [Unknown]
  - Accidental overdose [Unknown]
